FAERS Safety Report 8855347 (Version 1)
Quarter: 2012Q4

REPORT INFORMATION
  Report Type: 
  Country: US (occurrence: US)
  Receive Date: 20121023
  Receipt Date: 20121023
  Transmission Date: 20130627
  Serious: No
  Sender: FDA-Public Use
  Company Number: US-AMGEN-USASP2012053690

PATIENT
  Age: 36 Year
  Sex: Female
  Weight: 73.92 kg

DRUGS (3)
  1. ENBREL [Suspect]
     Indication: PRODUCT USED FOR UNKNOWN INDICATION
     Dosage: 50 mg, qwk
  2. SOMA [Concomitant]
     Dosage: 350 mg, UNK
  3. ADVIL                              /00044201/ [Concomitant]
     Dosage: UNK

REACTIONS (3)
  - Injection site pain [Unknown]
  - Weight increased [Unknown]
  - Sinusitis [Unknown]
